FAERS Safety Report 5510711-2 (Version None)
Quarter: 2007Q4

REPORT INFORMATION
  Report Type: 
  Country: None (occurrence: None)
  Receive Date: 20071108
  Receipt Date: 20071031
  Transmission Date: 20080405
  Serious: Yes (Life-Threatening)
  Sender: FDA-Public Use
  Company Number: A0691088A

PATIENT
  Age: 65 Year
  Sex: Male
  Weight: 133 kg

DRUGS (17)
  1. AVANDIA [Suspect]
     Indication: TYPE 2 DIABETES MELLITUS
     Dosage: 8MG PER DAY
     Route: 048
     Dates: start: 20070119, end: 20070101
  2. SHAMPOO [Concomitant]
  3. REACTINE [Concomitant]
     Dosage: 10MG AT NIGHT
     Route: 048
  4. NIZORAL CREAM [Concomitant]
  5. LOCACORTEN VIOFORM EARDROPS [Concomitant]
     Dosage: 2DROP THREE TIMES PER DAY
     Route: 001
  6. IBUPROFEN [Concomitant]
     Dosage: 600MG AS REQUIRED
  7. VIAGRA [Concomitant]
     Dosage: 100MG AS REQUIRED
     Route: 048
  8. INDAPAMIDE [Concomitant]
     Dosage: 1.25MG PER DAY
  9. ATENOLOL [Concomitant]
     Dosage: 200MG PER DAY
     Route: 048
  10. VALISONE [Concomitant]
     Route: 061
  11. GLYBURIDE [Concomitant]
     Dosage: 5MG TWICE PER DAY
     Route: 048
  12. COUMADIN [Concomitant]
     Dosage: 5MG AS DIRECTED
     Route: 048
  13. LAMISIL [Concomitant]
  14. DIOVAN [Concomitant]
     Dosage: 160MG PER DAY
     Route: 048
  15. NORVASC [Concomitant]
     Dosage: 10MG PER DAY
     Route: 048
  16. DIGOXIN [Concomitant]
     Dosage: .25MG PER DAY
     Route: 048
  17. METFORMIN HCL [Concomitant]
     Dosage: 1000MG TWICE PER DAY
     Route: 048

REACTIONS (7)
  - CARDIAC FAILURE CONGESTIVE [None]
  - CARDIOMEGALY [None]
  - CHEST DISCOMFORT [None]
  - CHEST PAIN [None]
  - DYSPNOEA [None]
  - DYSPNOEA EXERTIONAL [None]
  - OEDEMA PERIPHERAL [None]
